FAERS Safety Report 6780954-9 (Version None)
Quarter: 2010Q2

REPORT INFORMATION
  Report Type: 
  Country: None (occurrence: None)
  Receive Date: 20100621
  Receipt Date: 20100610
  Transmission Date: 20101027
  Serious: Yes (Hospitalization, Other)
  Sender: FDA-Public Use
  Company Number: US-JNJFOC-20100603641

PATIENT
  Sex: Female
  Weight: 68.3 kg

DRUGS (4)
  1. REMICADE [Suspect]
     Indication: CROHN'S DISEASE
     Route: 042
  2. REMICADE [Suspect]
     Route: 042
  3. MIRALAX [Concomitant]
  4. PANTOPRAZOLE [Concomitant]

REACTIONS (1)
  - CROHN'S DISEASE [None]
